FAERS Safety Report 10664068 (Version 2)
Quarter: 2015Q1

REPORT INFORMATION
  Report Type: Spontaneous
  Country: ES (occurrence: ES)
  Receive Date: 20141219
  Receipt Date: 20150122
  Transmission Date: 20150720
  Serious: Yes (Other)
  Sender: FDA-Public Use
  Company Number: ES-MYLANLABS-2014M1000239

PATIENT
  Age: 58 Year
  Sex: Female
  Weight: 65 kg

DRUGS (15)
  1. ONDANSETRON [Concomitant]
     Active Substance: ONDANSETRON
     Dosage: 4MG
     Route: 065
  2. DEXKETOPROFEN [Concomitant]
     Active Substance: DEXKETOPROFEN
     Dosage: 50MG
     Route: 065
  3. FENTANYL. [Concomitant]
     Active Substance: FENTANYL
     Dosage: 300 MICROG
     Route: 065
  4. ATROPINE [Concomitant]
     Active Substance: ATROPINE
     Dosage: 0.5MG
     Route: 065
  5. CEFAZOLIN [Suspect]
     Active Substance: CEFAZOLIN
     Dosage: 2G
     Route: 065
  6. MIDAZOLAM [Concomitant]
     Active Substance: MIDAZOLAM\MIDAZOLAM HYDROCHLORIDE
     Dosage: 2MG
     Route: 065
  7. PROPOFOL. [Concomitant]
     Active Substance: PROPOFOL
     Dosage: 10MG
     Route: 065
  8. SEVOFLURANE. [Concomitant]
     Active Substance: SEVOFLURANE
     Indication: MAINTENANCE OF ANAESTHESIA
     Route: 055
  9. LIDOCAINE. [Concomitant]
     Active Substance: LIDOCAINE
     Dosage: 4MG
     Route: 065
  10. PROPOFOL. [Concomitant]
     Active Substance: PROPOFOL
     Dosage: 100MG
     Route: 065
  11. DEXAMETHASONE. [Concomitant]
     Active Substance: DEXAMETHASONE
     Dosage: 4MG
     Route: 065
  12. ROCURONIUM BROMIDE. [Suspect]
     Active Substance: ROCURONIUM BROMIDE
     Dosage: 50MG
     Route: 065
  13. ROPIVACAINE [Concomitant]
     Active Substance: ROPIVACAINE
     Dosage: 0.5% (20 ML)
     Route: 065
  14. RANITIDINE [Concomitant]
     Active Substance: RANITIDINE\RANITIDINE HYDROCHLORIDE
     Dosage: 50MG
     Route: 065
  15. PARACETAMOL [Concomitant]
     Active Substance: ACETAMINOPHEN
     Dosage: 1G
     Route: 065

REACTIONS (1)
  - Kounis syndrome [Recovered/Resolved]
